FAERS Safety Report 18849927 (Version 3)
Quarter: 2021Q1

REPORT INFORMATION
  Report Type: Report from Study
  Country: US (occurrence: US)
  Receive Date: 20210205
  Receipt Date: 20210222
  Transmission Date: 20210420
  Serious: Yes (Death, Hospitalization, Other)
  Sender: FDA-Public Use
  Company Number: US-GILEAD-2021-0512265

PATIENT
  Age: 65 Year
  Sex: Female

DRUGS (7)
  1. TADALAFIL. [Concomitant]
     Active Substance: TADALAFIL
  2. AMBRISENTAN [Suspect]
     Active Substance: AMBRISENTAN
     Indication: PULMONARY HYPERTENSION
     Dosage: 10 MG, QD
     Route: 048
     Dates: start: 20200214
  3. REMODULIN [Concomitant]
     Active Substance: TREPROSTINIL
  4. OXYGEN. [Concomitant]
     Active Substance: OXYGEN
  5. ADEMPAS [Concomitant]
     Active Substance: RIOCIGUAT
  6. AMLODIPINE [Concomitant]
     Active Substance: AMLODIPINE BESYLATE
  7. ADCIRCA [Concomitant]
     Active Substance: TADALAFIL

REACTIONS (4)
  - Death [Fatal]
  - Oropharyngeal pain [Not Recovered/Not Resolved]
  - Gastrointestinal bacterial infection [Unknown]
  - Respiratory distress [Unknown]

NARRATIVE: CASE EVENT DATE: 20210213
